FAERS Safety Report 7192469-7 (Version None)
Quarter: 2010Q4

REPORT INFORMATION
  Report Type: 
  Country: None (occurrence: None)
  Receive Date: 20101223
  Receipt Date: 20100824
  Transmission Date: 20110411
  Serious: No
  Sender: FDA-Public Use
  Company Number: US-AMGEN-KDL433763

PATIENT

DRUGS (2)
  1. ENBREL [Suspect]
     Indication: ANKYLOSING SPONDYLITIS
     Dosage: 50 MG, QWK
     Route: 058
     Dates: start: 20081101
  2. METHOTREXATE [Concomitant]
     Dosage: UNK UNK, UNK

REACTIONS (4)
  - FATIGUE [None]
  - H1N1 INFLUENZA [None]
  - INJECTION SITE HAEMATOMA [None]
  - SLUGGISHNESS [None]
